FAERS Safety Report 4594786-3 (Version None)
Quarter: 2005Q1

REPORT INFORMATION
  Report Type: 
  Country: None (occurrence: None)
  Receive Date: 20050223
  Receipt Date: 20050217
  Transmission Date: 20050727
  Serious: Yes (Hospitalization)
  Sender: FDA-Public Use
  Company Number: 2005020012

PATIENT
  Age: 46 Year
  Sex: Female

DRUGS (2)
  1. SOMA [Suspect]
     Dosage: SEE IMAGE, PO
     Route: 048
  2. VICODIN [Suspect]
     Dosage: PO
     Route: 048

REACTIONS (2)
  - DRUG DEPENDENCE [None]
  - OVERDOSE [None]
